FAERS Safety Report 11536459 (Version 1)
Quarter: 2015Q3

REPORT INFORMATION
  Report Type: Spontaneous
  Country: CA (occurrence: CA)
  Receive Date: 20150922
  Receipt Date: 20150922
  Transmission Date: 20151125
  Serious: Yes (Other)
  Sender: FDA-Public Use
  Company Number: CA-TEVA-594207ACC

PATIENT
  Age: 82 Year
  Sex: Female

DRUGS (4)
  1. PREDNISONE. [Concomitant]
     Active Substance: PREDNISONE
  2. PROBIOTIC [Concomitant]
     Active Substance: PROBIOTICS NOS
  3. LORAZEPAM. [Suspect]
     Active Substance: LORAZEPAM
     Indication: RASH
     Route: 065
  4. AMLODIPINE [Suspect]
     Active Substance: AMLODIPINE BESYLATE
     Route: 065

REACTIONS (5)
  - Rash [Unknown]
  - Product substitution issue [Unknown]
  - Pruritus [Unknown]
  - Dermatitis [Unknown]
  - Rash pustular [Unknown]
